FAERS Safety Report 10247453 (Version 1)
Quarter: 2014Q2

REPORT INFORMATION
  Report Type: Spontaneous
  Country: US (occurrence: US)
  Receive Date: 20140619
  Receipt Date: 20140619
  Transmission Date: 20141212
  Serious: No
  Sender: FDA-Public Use
  Company Number: US-B.I. PHARMACEUTICALS,INC./RIDGEFIELD-2014-BI-26234BP

PATIENT
  Age: 56 Year
  Sex: Male
  Weight: 95 kg

DRUGS (3)
  1. SPIRIVA [Suspect]
     Indication: CHRONIC OBSTRUCTIVE PULMONARY DISEASE
     Dosage: 18 MCG
     Route: 055
     Dates: start: 201405, end: 201406
  2. IPRATROPIUM/ ALBUTEROL [Concomitant]
     Indication: CHRONIC OBSTRUCTIVE PULMONARY DISEASE
     Dosage: 6 MG
     Route: 055
     Dates: start: 20140608
  3. PROVENTIL [Concomitant]
     Indication: CHEST DISCOMFORT
     Dosage: 2 TO 3 PUFFS DAY AS REQUIRED
     Route: 055
     Dates: start: 2013

REACTIONS (2)
  - Dry skin [Recovered/Resolved]
  - Urticaria [Recovered/Resolved]
